FAERS Safety Report 10740866 (Version 1)
Quarter: 2015Q1

REPORT INFORMATION
  Report Type: Spontaneous
  Country: US (occurrence: None)
  Receive Date: 20150123
  Receipt Date: 20150123
  Transmission Date: 20150721
  Serious: Yes (Other)
  Sender: FDA-Public Use
  Company Number: None

PATIENT
  Age: 50 Year
  Sex: Female
  Weight: 107 kg

DRUGS (1)
  1. ALEMTUZUMAB [Suspect]
     Active Substance: ALEMTUZUMAB
     Indication: TRANSPLANT
     Route: 042
     Dates: start: 20080730

REACTIONS (2)
  - Basedow^s disease [None]
  - Systemic lupus erythematosus [None]

NARRATIVE: CASE EVENT DATE: 20141110
